FAERS Safety Report 8073478-2 (Version None)
Quarter: 2012Q1

REPORT INFORMATION
  Report Type: 
  Country: None (occurrence: None)
  Receive Date: 20120126
  Receipt Date: 20120126
  Transmission Date: 20120608
  Serious: No
  Sender: FDA-Public Use
  Company Number: None

PATIENT
  Age: 58 Year
  Sex: Female
  Weight: 72.574 kg

DRUGS (1)
  1. METHOTREXATE [Suspect]
     Indication: WEGENER'S GRANULOMATOSIS
     Dosage: .9 CC
     Route: 058
     Dates: start: 20120124, end: 20120124

REACTIONS (3)
  - PRODUCT QUALITY ISSUE [None]
  - UNEVALUABLE EVENT [None]
  - PRODUCT CONTAMINATION PHYSICAL [None]
